FAERS Safety Report 4777550-1 (Version None)
Quarter: 2005Q3

REPORT INFORMATION
  Report Type: 
  Country: None (occurrence: None)
  Receive Date: 20050921
  Receipt Date: 20050825
  Transmission Date: 20060218
  Serious: Yes (Other)
  Sender: FDA-Public Use
  Company Number: A-JP2005-10610

PATIENT
  Age: 30 Year
  Sex: Female

DRUGS (15)
  1. TRACLEER [Suspect]
     Indication: PULMONARY HYPERTENSION
     Dosage: SEE IMAGE
     Route: 048
     Dates: start: 20050707, end: 20050804
  2. TRACLEER [Suspect]
     Indication: PULMONARY HYPERTENSION
     Dosage: SEE IMAGE
     Route: 048
     Dates: start: 20050805, end: 20050809
  3. TRACLEER [Suspect]
     Indication: PULMONARY HYPERTENSION
     Dosage: SEE IMAGE
     Route: 048
     Dates: start: 20050816, end: 20050817
  4. TRACLEER [Suspect]
     Indication: PULMONARY HYPERTENSION
     Dosage: SEE IMAGE
     Route: 048
     Dates: start: 20050830
  5. PREDNISONE [Concomitant]
  6. BERAPROST SODIUM (BERAPROST SODIUM) [Concomitant]
  7. WARFARIN SODIUM [Concomitant]
  8. FUROSEMIDE [Concomitant]
  9. CILEXETIL (CANDESARTAN CILEXETIL) [Concomitant]
  10. ATORVASTATIN CALCIUM [Concomitant]
  11. OMEPRAZOLE [Concomitant]
  12. MOSAPRIDE CITRATE [Concomitant]
  13. ALFACALCIDOL (ALFACALCIDOL) [Concomitant]
  14. MAGNESIUM OXIDE (MAGNESIUM OXIDE) [Concomitant]
  15. ESTAZOLAM [Concomitant]

REACTIONS (5)
  - ABDOMINAL PAIN UPPER [None]
  - ALANINE AMINOTRANSFERASE INCREASED [None]
  - ASPARTATE AMINOTRANSFERASE INCREASED [None]
  - HEPATIC FUNCTION ABNORMAL [None]
  - PYREXIA [None]
